FAERS Safety Report 4690405-6 (Version None)
Quarter: 2005Q2

REPORT INFORMATION
  Report Type: 
  Country: None (occurrence: None)
  Receive Date: 20050615
  Receipt Date: 20030630
  Transmission Date: 20051028
  Serious: Yes (Death, Hospitalization)
  Sender: FDA-Public Use
  Company Number: GB-SANOFI-SYNTHELABO-D01200300850

PATIENT
  Sex: Male
  Weight: 71 kg

DRUGS (4)
  1. SR57746 OR PLACEBO [Suspect]
     Route: 048
     Dates: start: 20030612, end: 20030601
  2. OXALIPLATIN [Suspect]
     Route: 042
     Dates: start: 20030612, end: 20030612
  3. FLUOROURACIL [Suspect]
     Dosage: 400 MG/M2 AS IV BOLUS THEN 600 MG/M2 AS 22 HOURS CONTINUOUS INFUSION D1-D2 Q2W
     Route: 042
     Dates: start: 20030612, end: 20030613
  4. LEUCOVORIN [Suspect]
     Dosage: 200 MG/M2 AS 2 HOURS INFUSION ON D1-D2 Q2W
     Route: 042
     Dates: start: 20030612, end: 20030613

REACTIONS (19)
  - ABDOMINAL DISTENSION [None]
  - ASCITES [None]
  - BLOOD PRESSURE SYSTOLIC INCREASED [None]
  - CIRCULATORY COLLAPSE [None]
  - DEHYDRATION [None]
  - ENTEROBACTER INFECTION [None]
  - FLATULENCE [None]
  - INFECTION [None]
  - INTESTINAL OBSTRUCTION [None]
  - NAUSEA [None]
  - OXYGEN SATURATION DECREASED [None]
  - PAIN [None]
  - PYREXIA [None]
  - RENAL FAILURE [None]
  - RESPIRATORY RATE INCREASED [None]
  - SEPTIC SHOCK [None]
  - TACHYCARDIA [None]
  - URINARY RETENTION [None]
  - VOMITING [None]
